FAERS Safety Report 12436146 (Version 2)
Quarter: 2016Q3

REPORT INFORMATION
  Report Type: Spontaneous
  Country: GR (occurrence: GR)
  Receive Date: 20160605
  Receipt Date: 20160701
  Transmission Date: 20161109
  Serious: Yes (Hospitalization, Other)
  Sender: FDA-Public Use
  Company Number: GR-MYLANLABS-2016M1022884

PATIENT

DRUGS (2)
  1. FONDAPARINUX [Suspect]
     Active Substance: FONDAPARINUX
     Indication: PULMONARY EMBOLISM
     Dosage: 7.5 MG, QD
     Route: 058
     Dates: start: 20160516, end: 20160520
  2. WARFARIN [Suspect]
     Active Substance: WARFARIN
     Indication: PULMONARY EMBOLISM
     Dosage: UNK

REACTIONS (2)
  - Urinary retention [Recovered/Resolved]
  - Haemorrhage urinary tract [Recovered/Resolved]
